FAERS Safety Report 14599694 (Version 12)
Quarter: 2023Q2

REPORT INFORMATION
  Report Type: Spontaneous
  Country: ES (occurrence: ES)
  Receive Date: 20180305
  Receipt Date: 20230405
  Transmission Date: 20230721
  Serious: Yes (Hospitalization, Other)
  Sender: FDA-Public Use
  Company Number: ES-MYLANLABS-2018M1015124

PATIENT
  Sex: Female
  Weight: 1.53 kg

DRUGS (8)
  1. CALCITONIN SALMON [Suspect]
     Active Substance: CALCITONIN SALMON
     Indication: Hypercalcaemia
     Dosage: 100 INTERNATIONAL UNIT, Q6H, 100 IU, Q6H
     Route: 064
  2. CALCITONIN SALMON [Suspect]
     Active Substance: CALCITONIN SALMON
     Indication: Hyperparathyroidism primary
     Dosage: UNK
     Route: 064
  3. CINACALCET HYDROCHLORIDE [Suspect]
     Active Substance: CINACALCET HYDROCHLORIDE
     Indication: Hypercalcaemia
     Dosage: 30 MILLIGRAM
     Route: 064
  4. CINACALCET HYDROCHLORIDE [Suspect]
     Active Substance: CINACALCET HYDROCHLORIDE
     Indication: Hyperparathyroidism primary
     Dosage: UNK
     Route: 064
  5. BETAMETHASONE [Suspect]
     Active Substance: BETAMETHASONE
     Indication: Maternal therapy to enhance foetal lung maturity
     Dosage: 2 DOSAGE FORM, QOD (2 DF, QOD 9 (DOSE 12 MG))
     Route: 064
  6. BETAMETHASONE [Suspect]
     Active Substance: BETAMETHASONE
     Dosage: UNK
     Route: 064
  7. FUROSEMIDE [Suspect]
     Active Substance: FUROSEMIDE
     Indication: Hyperparathyroidism
     Dosage: 20 MILLIGRAM, Q8H, 20 MG, Q8H
     Route: 064
  8. FUROSEMIDE [Suspect]
     Active Substance: FUROSEMIDE
     Indication: Hyperparathyroidism primary
     Dosage: UNK
     Route: 064

REACTIONS (8)
  - Low birth weight baby [Unknown]
  - Foetal heart rate deceleration abnormality [Unknown]
  - Neonatal cholestasis [Recovered/Resolved]
  - Neonatal hypocalcaemia [Recovered/Resolved]
  - Jaundice neonatal [Recovered/Resolved]
  - Foetal growth restriction [Unknown]
  - Bilirubin conjugated increased [Unknown]
  - Foetal exposure during pregnancy [Unknown]
